FAERS Safety Report 8021188 (Version 3)
Quarter: 2019Q4

REPORT INFORMATION
  Report Type: Report from Study
  Country: DE (occurrence: DE)
  Receive Date: 20110705
  Receipt Date: 20191014
  Transmission Date: 20200122
  Serious: Yes (Hospitalization)
  Sender: FDA-Public Use
  Company Number: DE-ROCHE-786535

PATIENT
  Age: 50 Year
  Sex: Female
  Weight: 63.4 kg

DRUGS (6)
  1. BEVACIZUMAB. [Suspect]
     Active Substance: BEVACIZUMAB
     Route: 042
     Dates: start: 20110518, end: 20110518
  2. PACLITAXEL. [Concomitant]
     Active Substance: PACLITAXEL
     Indication: BREAST CANCER METASTATIC
     Dosage: MOST RECENT DOSE RECEIVED ON 11/JUN/2011
     Route: 042
     Dates: start: 20110427
  3. BEVACIZUMAB. [Suspect]
     Active Substance: BEVACIZUMAB
     Indication: BREAST CANCER METASTATIC
     Route: 042
     Dates: start: 20110427, end: 20110427
  4. VERGENTAN [Concomitant]
     Active Substance: ALIZAPRIDE HYDROCHLORIDE
     Indication: PROPHYLAXIS
     Route: 042
  5. BEVACIZUMAB. [Suspect]
     Active Substance: BEVACIZUMAB
     Route: 042
     Dates: start: 20110608, end: 20110608
  6. DEXAMETHASONE. [Concomitant]
     Active Substance: DEXAMETHASONE
     Indication: PROPHYLAXIS
     Route: 065

REACTIONS (3)
  - Cervical polyp [Recovered/Resolved]
  - Vaginal haemorrhage [Recovered/Resolved]
  - Epistaxis [Recovered/Resolved]

NARRATIVE: CASE EVENT DATE: 20110525
